FAERS Safety Report 6188826-8 (Version None)
Quarter: 2009Q2

REPORT INFORMATION
  Report Type: 
  Country: None (occurrence: None)
  Receive Date: 20090513
  Receipt Date: 20090319
  Transmission Date: 20091009
  Serious: Yes (Hospitalization)
  Sender: FDA-Public Use
  Company Number: FR-PFIZER INC-2009210884

PATIENT
  Age: 49 Year

DRUGS (7)
  1. ATARAX [Suspect]
     Indication: GENERAL ANAESTHESIA
     Dosage: UNK
     Dates: start: 20080401, end: 20080401
  2. DIPRIVAN [Suspect]
     Indication: GENERAL ANAESTHESIA
     Dosage: UNK
     Dates: start: 20080401, end: 20080401
  3. SUFENTA PRESERVATIVE FREE [Suspect]
     Indication: GENERAL ANAESTHESIA
     Dosage: UNK
     Dates: start: 20080401, end: 20080401
  4. MIVACRON [Suspect]
     Indication: GENERAL ANAESTHESIA
     Dosage: UNK
     Dates: start: 20080401, end: 20080401
  5. ACUPAN [Suspect]
     Indication: GENERAL ANAESTHESIA
     Dosage: UNK
     Dates: start: 20080401, end: 20080401
  6. DEXAMETHASONE [Suspect]
     Indication: GENERAL ANAESTHESIA
     Dosage: UNK
     Dates: start: 20080401, end: 20080401
  7. DROLEPTAN [Suspect]
     Indication: GENERAL ANAESTHESIA
     Dosage: UNK
     Dates: start: 20080401, end: 20080401

REACTIONS (1)
  - GENERALISED ERYTHEMA [None]
